FAERS Safety Report 4537653-3 (Version None)
Quarter: 2004Q4

REPORT INFORMATION
  Report Type: 
  Country: None (occurrence: None)
  Receive Date: 20041216
  Receipt Date: 20040415
  Transmission Date: 20050328
  Serious: Yes (Hospitalization)
  Sender: FDA-Public Use
  Company Number: CHPA2004US01501

PATIENT
  Age: 65 Year
  Sex: Female
  Weight: 77.1 kg

DRUGS (6)
  1. TRANSDERM SCOP [Suspect]
     Indication: MIDDLE EAR EFFUSION
     Dosage: 1 PATCH Q72H, TRANSDERMAL
     Route: 062
     Dates: start: 20020901, end: 20040301
  2. ULTRAM [Concomitant]
  3. NASACORT [Concomitant]
  4. MIACALCIN [Concomitant]
  5. DITROPAN [Concomitant]
  6. INSULIN [Concomitant]

REACTIONS (17)
  - ASTHENIA [None]
  - CRYING [None]
  - DEPRESSION [None]
  - DIFFICULTY IN WALKING [None]
  - DIZZINESS [None]
  - DRUG WITHDRAWAL SYNDROME [None]
  - DRY MOUTH [None]
  - DYSSTASIA [None]
  - FEELING ABNORMAL [None]
  - HALLUCINATION [None]
  - HYPERHIDROSIS [None]
  - KERATOCONJUNCTIVITIS SICCA [None]
  - MYDRIASIS [None]
  - NAUSEA [None]
  - OEDEMA PERIPHERAL [None]
  - TREMOR [None]
  - VISION BLURRED [None]
